FAERS Safety Report 10025783 (Version 3)
Quarter: 2014Q2

REPORT INFORMATION
  Report Type: Spontaneous
  Country: JP (occurrence: JP)
  Receive Date: 20140320
  Receipt Date: 20140401
  Transmission Date: 20141212
  Serious: Yes (Other)
  Sender: FDA-Public Use
  Company Number: JP-PFIZER INC-2014081104

PATIENT
  Age: 6 Decade
  Sex: Male

DRUGS (1)
  1. CELECOX [Suspect]
     Dosage: UNK
     Route: 048

REACTIONS (1)
  - Retinal tear [Recovering/Resolving]
